FAERS Safety Report 6337367-3 (Version None)
Quarter: 2009Q3

REPORT INFORMATION
  Report Type: 
  Country: None (occurrence: None)
  Receive Date: 20090901
  Receipt Date: 20090901
  Transmission Date: 20100115
  Serious: No
  Sender: FDA-Public Use
  Company Number: None

PATIENT
  Sex: Male
  Weight: 86.1834 kg

DRUGS (1)
  1. SPIRIVA [Suspect]
     Indication: CHRONIC OBSTRUCTIVE PULMONARY DISEASE
     Dosage: 18 MCG ONCE DAILY INHALATION
     Route: 055
     Dates: start: 20060101, end: 20090101

REACTIONS (3)
  - BURNING SENSATION [None]
  - COUGH [None]
  - LUNG DISORDER [None]
